FAERS Safety Report 10360034 (Version 1)
Quarter: 2014Q3

REPORT INFORMATION
  Report Type: Spontaneous
  Country: US (occurrence: US)
  Receive Date: 20140804
  Receipt Date: 20140804
  Transmission Date: 20150326
  Serious: No
  Sender: FDA-Public Use
  Company Number: US-009507513-1408USA000617

PATIENT
  Age: 29 Year
  Sex: Female
  Weight: 89.8 kg

DRUGS (1)
  1. NEXPLANON [Suspect]
     Active Substance: ETONOGESTREL
     Indication: CONTRACEPTION
     Dosage: DOSE/FREQUENCY: 3 YEAR IMPLANT
     Route: 059
     Dates: start: 20140521

REACTIONS (8)
  - Headache [Unknown]
  - Fear [Unknown]
  - Nausea [Unknown]
  - Back pain [Unknown]
  - Mood swings [Unknown]
  - Abdominal pain upper [Unknown]
  - Hot flush [Unknown]
  - Emotional disorder [Unknown]

NARRATIVE: CASE EVENT DATE: 201406
